FAERS Safety Report 6904608-0 (Version None)
Quarter: 2010Q3

REPORT INFORMATION
  Report Type: 
  Country: None (occurrence: None)
  Receive Date: 20100804
  Receipt Date: 20090617
  Transmission Date: 20110219
  Serious: No
  Sender: FDA-Public Use
  Company Number: US-PFIZER INC-2009218760

PATIENT
  Sex: Male
  Weight: 260 kg

DRUGS (13)
  1. LYRICA [Suspect]
     Indication: DIABETIC NEUROPATHY
     Dosage: 150 MG, 2X/DAY
     Route: 048
     Dates: start: 20070101
  2. METFORMIN HYDROCHLORIDE/SITAGLIPTIN [Concomitant]
     Indication: DIABETES MELLITUS
     Dosage: UNK
  3. GLIMEPIRIDE [Concomitant]
     Indication: DIABETES MELLITUS
     Dosage: UNK
  4. NOVOLOG [Concomitant]
     Indication: DIABETES MELLITUS
     Dosage: UNK
  5. LANTUS [Concomitant]
     Indication: DIABETES MELLITUS
     Dosage: UNK
  6. DIOVAN HCT [Concomitant]
     Indication: HYPERTENSION
     Dosage: UNK
  7. LIPITOR [Concomitant]
     Indication: BLOOD CHOLESTEROL INCREASED
     Dosage: UNK
  8. LEVOTHYROXINE [Concomitant]
     Indication: THYROID DISORDER
     Dosage: UNK
  9. FLOMAX [Concomitant]
     Indication: MICTURITION DISORDER
     Dosage: UNK
  10. ACETYLSALICYLIC ACID [Concomitant]
     Dosage: UNK
  11. VITAMIN B [Concomitant]
     Dosage: UNK
  12. MULTI-VITAMINS [Concomitant]
     Dosage: UNK
  13. COENZYME Q10 [Concomitant]
     Dosage: UNK

REACTIONS (1)
  - PAIN [None]
